FAERS Safety Report 13076284 (Version 1)
Quarter: 2016Q4

REPORT INFORMATION
  Report Type: Spontaneous
  Country: US (occurrence: US)
  Receive Date: 20161229
  Receipt Date: 20161229
  Transmission Date: 20170207
  Serious: Yes (Other)
  Sender: FDA-Public Use
  Company Number: None

PATIENT
  Age: 23 Year
  Sex: Female
  Weight: 59 kg

DRUGS (1)
  1. KETOROLAC TROMETHAMINE. [Suspect]
     Active Substance: KETOROLAC TROMETHAMINE
     Route: 042
     Dates: start: 20160531, end: 20160531

REACTIONS (2)
  - Acute respiratory failure [None]
  - Anaphylactic reaction [None]

NARRATIVE: CASE EVENT DATE: 20160531
